FAERS Safety Report 23568878 (Version 1)
Quarter: 2024Q1

REPORT INFORMATION
  Report Type: Report from Study
  Country: US (occurrence: US)
  Receive Date: 20240227
  Receipt Date: 20240227
  Transmission Date: 20240410
  Serious: No
  Sender: FDA-Public Use
  Company Number: US-ORG100014127-2023000202

PATIENT
  Age: 54 Year
  Sex: Female

DRUGS (7)
  1. METOPIRONE [Suspect]
     Active Substance: METYRAPONE
     Indication: Cushing^s syndrome
     Dosage: 250 MG 1 CAPSULE TID
     Route: 048
     Dates: start: 20221208, end: 20230127
  2. HYDRALAZINE TAB 50MG [Concomitant]
     Indication: Product used for unknown indication
  3. INSULIN GLAR SOL 100U/ML [Concomitant]
     Indication: Product used for unknown indication
  4. INSULIN LISP INJ 100/ML [Concomitant]
     Indication: Product used for unknown indication
  5. KETOCONAZOLE TAB 200MG [Concomitant]
     Indication: Product used for unknown indication
  6. LOPERAMIDE CAP 2MG [Concomitant]
     Indication: Product used for unknown indication
  7. POTASSIUM POW CHLORIDE [Concomitant]
     Indication: Product used for unknown indication

REACTIONS (1)
  - Off label use [Recovered/Resolved]

NARRATIVE: CASE EVENT DATE: 20221208
